FAERS Safety Report 23850615 (Version 1)
Quarter: 2024Q2

REPORT INFORMATION
  Report Type: Report from Study
  Country: MY (occurrence: MY)
  Receive Date: 20240513
  Receipt Date: 20240513
  Transmission Date: 20240716
  Serious: Yes (Other)
  Sender: FDA-Public Use
  Company Number: MY-BAYER-2024A068697

PATIENT
  Age: 82 Year
  Sex: Male

DRUGS (2)
  1. XARELTO [Suspect]
     Active Substance: RIVAROXABAN
     Indication: Atrial fibrillation
     Dosage: 20 MG
     Route: 048
     Dates: start: 20220903
  2. XARELTO [Suspect]
     Active Substance: RIVAROXABAN
     Dosage: 15 MG
     Route: 048

REACTIONS (1)
  - Renal impairment [Unknown]
